FAERS Safety Report 6874062-6 (Version None)
Quarter: 2010Q3

REPORT INFORMATION
  Report Type: 
  Country: None (occurrence: None)
  Receive Date: 20100723
  Receipt Date: 20090417
  Transmission Date: 20110219
  Serious: No
  Sender: FDA-Public Use
  Company Number: US-PFIZER INC-2009203798

PATIENT
  Sex: Female
  Weight: 63.492 kg

DRUGS (1)
  1. CHANTIX [Suspect]
     Indication: SMOKING CESSATION THERAPY
     Dosage: FREQUENCY: 2X/DAY, EVERY DAY;
     Dates: start: 20081001

REACTIONS (2)
  - DRUG ADMINISTRATION ERROR [None]
  - VOMITING [None]
